FAERS Safety Report 25940823 (Version 1)
Quarter: 2025Q4

REPORT INFORMATION
  Report Type: Spontaneous
  Country: US (occurrence: None)
  Receive Date: 20251018
  Receipt Date: 20251018
  Transmission Date: 20260118
  Serious: Yes (Hospitalization)
  Sender: FDA-CTU
  Company Number: None

PATIENT
  Age: 73 Year
  Sex: Male
  Weight: 94.2 kg

DRUGS (1)
  1. TAXOTERE [Suspect]
     Active Substance: DOCETAXEL
     Dosage: OTHER QUANTITY : 2.4MG HE RECEIVED 5 ML OF A 120MG/250ML DOCETAXEL SOLUTIONI WHICH WAS DISCONTINUED AFTER 5 ML WAS GI;?
     Dates: end: 20251003

REACTIONS (3)
  - Hypertension [None]
  - Tachycardia [None]
  - Blood lactic acid increased [None]

NARRATIVE: CASE EVENT DATE: 20251003
